FAERS Safety Report 9229541 (Version 3)
Quarter: 2013Q4

REPORT INFORMATION
  Report Type: Spontaneous
  Country: US (occurrence: US)
  Receive Date: 20130413
  Receipt Date: 20131202
  Transmission Date: 20140711
  Serious: Yes (Disabling)
  Sender: FDA-Public Use
  Company Number: US-AMGEN-USASP2013025236

PATIENT
  Age: 49 Year
  Sex: Female
  Weight: 80.27 kg

DRUGS (3)
  1. ENBREL [Suspect]
     Indication: PRODUCT USED FOR UNKNOWN INDICATION
     Dosage: UNK
     Route: 065
     Dates: end: 20091209
  2. METHOTREXATE [Suspect]
     Indication: RHEUMATOID ARTHRITIS
     Dosage: 3.5 MG, QD
     Route: 065
  3. CELEBREX [Suspect]
     Indication: RHEUMATOID ARTHRITIS
     Dosage: 200 MG, BID
     Route: 065

REACTIONS (8)
  - Adenocarcinoma [Recovering/Resolving]
  - Asthenia [Unknown]
  - Cough [Unknown]
  - White blood cell count decreased [Unknown]
  - Vomiting [Not Recovered/Not Resolved]
  - Nasopharyngitis [Not Recovered/Not Resolved]
  - Pain [Unknown]
  - Learning disorder [Unknown]
